FAERS Safety Report 9478671 (Version 2)
Quarter: 2013Q3

REPORT INFORMATION
  Report Type: Spontaneous
  Country: US (occurrence: None)
  Receive Date: 20130822
  Receipt Date: 20130923
  Transmission Date: 20140515
  Serious: Yes (Other)
  Sender: FDA-Public Use
  Company Number: JPI-P-033737

PATIENT
  Age: 65 Year
  Sex: Male
  Weight: 100 kg

DRUGS (2)
  1. XYREM [Suspect]
     Indication: FIBROMYALGIA
     Dosage: 4.5 G, BID, ORAL
     Route: 048
     Dates: start: 20090130
  2. UNSPEFICIED MEDICATIONS [Suspect]
     Indication: PRODUCT USED FOR UNKNOWN INDICATION

REACTIONS (9)
  - Urticaria [None]
  - Rotator cuff syndrome [None]
  - Tendon rupture [None]
  - Bursitis [None]
  - Procedural pain [None]
  - Arthritis [None]
  - Fungal infection [None]
  - Rash [None]
  - Tendon rupture [None]
